FAERS Safety Report 9862335 (Version 1)
Quarter: 2014Q1

REPORT INFORMATION
  Report Type: Spontaneous
  Country: US (occurrence: US)
  Receive Date: 20140203
  Receipt Date: 20140203
  Transmission Date: 20141002
  Serious: Yes (Hospitalization)
  Sender: FDA-Public Use
  Company Number: US-CELGENEUS-163-21880-14014191

PATIENT
  Age: 77 Year
  Sex: Male
  Weight: 90.7 kg

DRUGS (4)
  1. REVLIMID [Suspect]
     Indication: PLASMA CELL MYELOMA
     Route: 048
     Dates: start: 20120330, end: 2012
  2. REVLIMID [Suspect]
     Dosage: 5 MILLIGRAM
     Route: 048
     Dates: start: 201206, end: 2012
  3. REVLIMID [Suspect]
     Route: 048
     Dates: start: 201211, end: 20131228
  4. REVLIMID [Suspect]
     Route: 048
     Dates: start: 20140104

REACTIONS (2)
  - Emphysema [Recovered/Resolved]
  - Influenza [Recovered/Resolved]
